FAERS Safety Report 10181958 (Version 2)
Quarter: 2014Q2

REPORT INFORMATION
  Report Type: Spontaneous
  Country: US (occurrence: US)
  Receive Date: 20140519
  Receipt Date: 20140519
  Transmission Date: 20141212
  Serious: Yes (Hospitalization, Other)
  Sender: FDA-Public Use
  Company Number: US-GILEAD-2014-0100854

PATIENT
  Sex: Female

DRUGS (1)
  1. LETAIRIS [Suspect]
     Indication: PRODUCT USED FOR UNKNOWN INDICATION
     Dosage: 5 MG, QD
     Route: 065
     Dates: start: 20130206

REACTIONS (6)
  - Postoperative wound infection [Unknown]
  - Cerebrovascular accident [Unknown]
  - Pneumonia [Unknown]
  - Hypertension [Unknown]
  - Oedema peripheral [Unknown]
  - Biopsy [Unknown]
